FAERS Safety Report 18372819 (Version 1)
Quarter: 2020Q4

REPORT INFORMATION
  Report Type: Spontaneous
  Country: NG (occurrence: NG)
  Receive Date: 20201012
  Receipt Date: 20201012
  Transmission Date: 20210114
  Serious: Yes (Other)
  Sender: FDA-Public Use
  Company Number: NG-PFIZER INC-2020389330

PATIENT
  Sex: Male

DRUGS (5)
  1. DALACIN [Suspect]
     Active Substance: CLINDAMYCIN
     Indication: SKIN INFECTION
  2. PARACETAMOL [Concomitant]
     Active Substance: ACETAMINOPHEN
     Dosage: UNK
  3. SPIRONOLACTONE. [Concomitant]
     Active Substance: SPIRONOLACTONE
     Dosage: UNK
  4. FUROSEMIDE. [Concomitant]
     Active Substance: FUROSEMIDE
     Dosage: UNK
  5. DALACIN [Suspect]
     Active Substance: CLINDAMYCIN
     Indication: HIDRADENITIS
     Dosage: 300 MG, 2X/DAY, EVERY 12 HOURS
     Dates: start: 2020, end: 2020

REACTIONS (1)
  - Acute kidney injury [Unknown]
